FAERS Safety Report 17985263 (Version 1)
Quarter: 2020Q3

REPORT INFORMATION
  Report Type: Spontaneous
  Country: US (occurrence: US)
  Receive Date: 20200706
  Receipt Date: 20200706
  Transmission Date: 20201103
  Serious: Yes (Hospitalization, Disabling)
  Sender: FDA-Public Use
  Company Number: US-BIOVITRUM-2020SE17193

PATIENT
  Sex: Female
  Weight: 6 kg

DRUGS (3)
  1. INDERAL [Concomitant]
     Active Substance: PROPRANOLOL HYDROCHLORIDE
     Indication: FALLOT^S TETRALOGY
     Dosage: 0.5 ML  (THERAPY END DATE 13/FEB/2020)
  2. SYNAGIS [Suspect]
     Active Substance: PALIVIZUMAB
     Indication: PREMATURE BABY
     Route: 030
     Dates: start: 20200106, end: 20200106
  3. LASIX [Concomitant]
     Active Substance: FUROSEMIDE
     Indication: FALLOT^S TETRALOGY
     Dosage: 0.5 ML (THERAPY END DATE WAS 13?FEB?2020)

REACTIONS (1)
  - Pulmonary valve stenosis [Recovered/Resolved]
